FAERS Safety Report 21932908 (Version 2)
Quarter: 2023Q2

REPORT INFORMATION
  Report Type: Report from Study
  Country: US (occurrence: US)
  Receive Date: 20230131
  Receipt Date: 20230406
  Transmission Date: 20230722
  Serious: No
  Sender: FDA-Public Use
  Company Number: US-MYLANLABS-2022M1136931

PATIENT
  Sex: Female
  Weight: 79.38 kg

DRUGS (2)
  1. GLATIRAMER ACETATE [Suspect]
     Active Substance: GLATIRAMER ACETATE
     Indication: Relapsing-remitting multiple sclerosis
     Dosage: 40 MILLIGRAM, 3XW
     Route: 058
     Dates: end: 202301
  2. GABAPENTIN [Concomitant]
     Active Substance: GABAPENTIN
     Dosage: UNK
     Route: 065

REACTIONS (7)
  - Illness [Unknown]
  - Nasopharyngitis [Unknown]
  - Injection site pain [Unknown]
  - Hypersensitivity [Unknown]
  - Dizziness [Unknown]
  - Feeling hot [Unknown]
  - Herpes zoster [Unknown]
